FAERS Safety Report 21451500 (Version 1)
Quarter: 2022Q4

REPORT INFORMATION
  Report Type: Report from Study
  Country: CA (occurrence: CA)
  Receive Date: 20221013
  Receipt Date: 20221013
  Transmission Date: 20230113
  Serious: Yes (Other)
  Sender: FDA-Public Use
  Company Number: CA-TEVA-2022-CA-2081711

PATIENT
  Age: 38 Year
  Sex: Male

DRUGS (10)
  1. TERBINAFINE [Suspect]
     Active Substance: TERBINAFINE
     Indication: Fungal infection
     Route: 048
  2. TERBINAFINE [Suspect]
     Active Substance: TERBINAFINE
     Indication: Trichophytosis
  3. KETOCONAZOLE [Suspect]
     Active Substance: KETOCONAZOLE
     Indication: Fungal infection
     Route: 065
  4. KETOCONAZOLE [Suspect]
     Active Substance: KETOCONAZOLE
     Indication: Trichophytosis
  5. TERBINAFINE [Suspect]
     Active Substance: TERBINAFINE
     Indication: Fungal infection
     Dosage: HE RECEIVED COMBINATION TREATMENT WITH TOPICAL 0.1% BETAMETHASONE CREAM AND TERBINAFINE CREAM SEVERA
     Route: 061
  6. TERBINAFINE [Suspect]
     Active Substance: TERBINAFINE
     Indication: Trichophytosis
  7. BETAMETHASONE [Suspect]
     Active Substance: BETAMETHASONE
     Indication: Fungal infection
     Dosage: HE RECEIVED COMBINATION TREATMENT WITH TOPICAL 0.1% BETAMETHASONE CREAM AND TERBINAFINE CREAM SEVERA
     Route: 061
  8. BETAMETHASONE [Suspect]
     Active Substance: BETAMETHASONE
     Indication: Trichophytosis
  9. ITRACONAZOLE [Suspect]
     Active Substance: ITRACONAZOLE
     Indication: Fungal infection
     Dosage: TREATMENT WAS STOPPED AFTER 1 WEEK
     Route: 048
  10. ITRACONAZOLE [Suspect]
     Active Substance: ITRACONAZOLE
     Indication: Trichophytosis

REACTIONS (3)
  - Fungal infection [Unknown]
  - Rash [Unknown]
  - Drug ineffective [Unknown]
